FAERS Safety Report 7007687-8 (Version None)
Quarter: 2010Q3

REPORT INFORMATION
  Report Type: 
  Country: None (occurrence: None)
  Receive Date: 20100922
  Receipt Date: 20100913
  Transmission Date: 20110219
  Serious: Yes (Hospitalization, Other)
  Sender: FDA-Public Use
  Company Number: US-ASTRAZENECA-2010SE36663

PATIENT
  Age: 52 Year
  Sex: Female
  Weight: 67.1 kg

DRUGS (20)
  1. SEROQUEL XR [Suspect]
     Indication: BIPOLAR DISORDER
     Route: 048
     Dates: start: 20100105, end: 20100306
  2. SEROQUEL XR [Suspect]
     Route: 048
  3. NEXIUM [Concomitant]
     Route: 048
  4. LORAZEPAM [Concomitant]
  5. SPIRONOLACTONE [Concomitant]
  6. METHADONE HCL [Concomitant]
  7. COUMADIN [Concomitant]
  8. PLAVIX [Concomitant]
  9. ASPIRIN [Concomitant]
  10. HYDROXYUREA [Concomitant]
  11. PROZAC [Concomitant]
  12. DOCUSATE SODIUM [Concomitant]
     Route: 048
  13. OXYCONTIN [Concomitant]
     Route: 048
  14. VENTOLIN [Concomitant]
     Dosage: 90 MCG/INH 2 PUFFS IHALED ORAALY EVERY 4-6 HRS
     Route: 055
  15. NORVASC [Concomitant]
     Route: 048
  16. PRILOSEC OTC [Concomitant]
     Route: 048
  17. CRESTOR [Concomitant]
  18. THIAMINE HCL [Concomitant]
  19. NICOTINE [Concomitant]
  20. ZOFRAN [Concomitant]

REACTIONS (4)
  - HYPERGLYCAEMIA [None]
  - INCORRECT DOSE ADMINISTERED [None]
  - METABOLIC ENCEPHALOPATHY [None]
  - TYPE 2 DIABETES MELLITUS [None]
